FAERS Safety Report 12267102 (Version 2)
Quarter: 2016Q2

REPORT INFORMATION
  Report Type: Spontaneous
  Country: GB (occurrence: GB)
  Receive Date: 20160414
  Receipt Date: 20160610
  Transmission Date: 20160815
  Serious: Yes (Other)
  Sender: FDA-Public Use
  Company Number: GB-SUN PHARMACEUTICAL INDUSTRIES LTD-2016RR-114747

PATIENT
  Sex: Female

DRUGS (1)
  1. ALENDRONIC ACID TEVA [Suspect]
     Active Substance: ALENDRONIC ACID
     Indication: PRODUCT USED FOR UNKNOWN INDICATION
     Dosage: 70 MG, UNK
     Route: 065

REACTIONS (4)
  - Osteorrhagia [Unknown]
  - Pain in jaw [Unknown]
  - Feeding disorder [Unknown]
  - Post procedural complication [Unknown]
